FAERS Safety Report 11158110 (Version 1)
Quarter: 2015Q2

REPORT INFORMATION
  Report Type: Spontaneous
  Country: US (occurrence: None)
  Receive Date: 20150513
  Receipt Date: 20150513
  Transmission Date: 20150821
  Serious: Yes (Hospitalization)
  Sender: FDA-Public Use
  Company Number: 2014PL000123

PATIENT
  Age: 33 Year
  Sex: Female

DRUGS (20)
  1. IMURAN [Suspect]
     Active Substance: AZATHIOPRINE
     Indication: PRODUCT USED FOR UNKNOWN INDICATION
     Route: 048
  2. NORVASC [Concomitant]
     Active Substance: AMLODIPINE BESYLATE
  3. ADCIRCA [Concomitant]
     Active Substance: TADALAFIL
  4. ASPIRIN (ACETYLSALICYLIC ACID) [Concomitant]
     Active Substance: ASPIRIN
  5. DOSTINEX (CABERGOLINE) [Concomitant]
  6. CELEXA /00582602/ (CITALOPRAM HYDROBROMIDE) [Concomitant]
  7. ATROVENT [Concomitant]
     Active Substance: IPRATROPIUM BROMIDE
  8. DELTASONE /00016001/ (DEXAMETHASONE) [Concomitant]
  9. IMPLANON (ETONOGESTREL) [Concomitant]
  10. COZAAR [Concomitant]
     Active Substance: LOSARTAN POTASSIUM
  11. LETAIRIS [Suspect]
     Active Substance: AMBRISENTAN
     Indication: PULMONARY HYPERTENSION
     Dates: start: 20130923
  12. WARFARIN (WARFARIN) [Concomitant]
     Active Substance: WARFARIN
  13. FERROUS SULFATE [Concomitant]
     Active Substance: FERROUS SULFATE\FERROUS SULFATE, DRIED
  14. NORCO (HYDROCODONE BITARTRATE, PARACETAMOL) [Concomitant]
  15. GLUMETZA [Concomitant]
     Active Substance: METFORMIN HYDROCHLORIDE
  16. PLAQUENIL /00072602/ (HYDROXYCHLOROQUINE PHOSPHATE) [Concomitant]
  17. TYVASO [Concomitant]
     Active Substance: TREPROSTINIL
  18. WELLBUTRIN [Concomitant]
     Active Substance: BUPROPION HYDROCHLORIDE
  19. CLARITIN /00413701/ (GLICLAZIDE) [Concomitant]
  20. PRILOSEC [Concomitant]
     Active Substance: OMEPRAZOLE MAGNESIUM

REACTIONS (4)
  - Anaemia [None]
  - Vaginal haemorrhage [None]
  - Dyspnoea [None]
  - Dizziness [None]
